FAERS Safety Report 6045448-7 (Version None)
Quarter: 2009Q1

REPORT INFORMATION
  Report Type: 
  Country: None (occurrence: None)
  Receive Date: 20090121
  Receipt Date: 20090112
  Transmission Date: 20090719
  Serious: Yes (Other)
  Sender: FDA-Public Use
  Company Number: BR-PFIZER INC-2009156033

PATIENT

DRUGS (1)
  1. ATORVASTATIN CALCIUM [Suspect]
     Indication: BLOOD TRIGLYCERIDES INCREASED
     Dosage: 20 MG, 1X/DAY
     Route: 048
     Dates: start: 20080101

REACTIONS (1)
  - BLOOD THYROID STIMULATING HORMONE INCREASED [None]
